FAERS Safety Report 5103076-1 (Version None)
Quarter: 2006Q3

REPORT INFORMATION
  Report Type: 
  Country: None (occurrence: None)
  Receive Date: 20060907
  Receipt Date: 20060831
  Transmission Date: 20061208
  Serious: Yes (Hospitalization)
  Sender: FDA-Public Use
  Company Number: 147312USA

PATIENT
  Age: 94 Year
  Sex: Female

DRUGS (5)
  1. HYDROCHLOROTHIAZIDE [Suspect]
     Indication: HYPERTENSION
     Dosage: 12.5 MILLIGRAM, ORAL
     Route: 048
     Dates: start: 20060519, end: 20060623
  2. DONEPEZIL HCL [Suspect]
     Indication: DEMENTIA ALZHEIMER'S TYPE
     Dosage: 10 MILLIGRAM, ORAL
     Route: 048
     Dates: start: 20060519
  3. ASPIRIN [Concomitant]
  4. CALCIUM WITH VITAMIN D [Concomitant]
  5. DILTIAZEM HCL [Concomitant]

REACTIONS (5)
  - ASTHENIA [None]
  - DEPRESSION [None]
  - FALL [None]
  - LABYRINTHITIS [None]
  - ORTHOSTATIC HYPOTENSION [None]
